FAERS Safety Report 5315034-2 (Version None)
Quarter: 2007Q2

REPORT INFORMATION
  Report Type: 
  Country: None (occurrence: None)
  Receive Date: 20070502
  Receipt Date: 20070418
  Transmission Date: 20071010
  Serious: Yes (Hospitalization, Other)
  Sender: FDA-Public Use
  Company Number: JP-ROCHE-435259

PATIENT
  Age: 58 Year
  Sex: Male
  Weight: 54 kg

DRUGS (10)
  1. TAMIFLU [Suspect]
     Route: 048
     Dates: start: 20060128, end: 20060128
  2. TAMIFLU [Suspect]
     Route: 048
     Dates: start: 20060129, end: 20060129
  3. NEOPHYLLIN [Concomitant]
     Route: 042
  4. RINDERON [Concomitant]
     Route: 042
  5. FLUMARIN [Concomitant]
     Route: 042
  6. SOLITA-T3 [Concomitant]
     Route: 042
  7. FLUTIDE DISKUS [Concomitant]
     Route: 055
  8. UNIPHYL [Concomitant]
     Route: 048
  9. ALLEGRA [Concomitant]
     Route: 048
  10. GASTER [Concomitant]
     Route: 048

REACTIONS (2)
  - DEPRESSED LEVEL OF CONSCIOUSNESS [None]
  - DYSPNOEA [None]
